FAERS Safety Report 13502758 (Version 3)
Quarter: 2021Q4

REPORT INFORMATION
  Report Type: Report from Study
  Country: US (occurrence: US)
  Receive Date: 20170502
  Receipt Date: 20211124
  Transmission Date: 20220303
  Serious: Yes (Other)
  Sender: FDA-Public Use
  Company Number: US-ASTELLAS-2017US016366

PATIENT

DRUGS (5)
  1. ERLOTINIB [Suspect]
     Active Substance: ERLOTINIB
     Indication: Non-small cell lung cancer metastatic
     Dosage: UNK UNK, ONCE DAILY
     Route: 048
  2. MOMELOTINIB [Suspect]
     Active Substance: MOMELOTINIB
     Indication: Non-small cell lung cancer metastatic
     Dosage: UNK UNK, ONCE DAILY (DOSE LEVEL 1)
     Route: 065
  3. MOMELOTINIB [Suspect]
     Active Substance: MOMELOTINIB
     Dosage: UNK UNK, ONCE DAILY (DL2A)
     Route: 065
  4. MOMELOTINIB [Suspect]
     Active Substance: MOMELOTINIB
     Dosage: UNK UNK, ONCE DAILY (DL2B)
     Route: 065
  5. MOMELOTINIB [Suspect]
     Active Substance: MOMELOTINIB
     Route: 065

REACTIONS (14)
  - Neutropenia [Unknown]
  - Neutrophil count decreased [Unknown]
  - Abdominal pain [Unknown]
  - Diarrhoea [Unknown]
  - Rash [Unknown]
  - Dyspnoea [Unknown]
  - Upper respiratory tract infection [Unknown]
  - Constipation [Unknown]
  - Thrombocytopenia [Unknown]
  - Nausea [Unknown]
  - Vomiting [Unknown]
  - Alanine aminotransferase increased [Unknown]
  - Aspartate aminotransferase increased [Unknown]
  - Hepatitis B reactivation [Unknown]
